FAERS Safety Report 5415580-7 (Version None)
Quarter: 2007Q3

REPORT INFORMATION
  Report Type: 
  Country: None (occurrence: None)
  Receive Date: 20070815
  Receipt Date: 20070808
  Transmission Date: 20080115
  Serious: Yes (Other)
  Sender: FDA-Public Use
  Company Number: JP-AVENTIS-200711618JP

PATIENT
  Age: 61 Year
  Sex: Male
  Weight: 54 kg

DRUGS (4)
  1. AMARYL [Suspect]
     Indication: DIABETES MELLITUS
     Route: 048
     Dates: start: 20070507, end: 20070613
  2. GLIMICRON [Concomitant]
     Route: 048
     Dates: start: 20070227, end: 20070506
  3. GLIMICRON [Concomitant]
     Route: 048
     Dates: start: 20070613
  4. MERCAZOLE [Concomitant]
     Indication: BASEDOW'S DISEASE
     Route: 048
     Dates: start: 20070322

REACTIONS (1)
  - RHABDOMYOLYSIS [None]
